FAERS Safety Report 7128164-X (Version None)
Quarter: 2010Q4

REPORT INFORMATION
  Report Type: 
  Country: None (occurrence: None)
  Receive Date: 20101130
  Receipt Date: 20101119
  Transmission Date: 20110411
  Serious: Yes (Hospitalization, Other)
  Sender: FDA-Public Use
  Company Number: US-TYCO HEALTHCARE/MALLINCKRODT-T201002054

PATIENT
  Sex: Male

DRUGS (7)
  1. OPTIMARK [Suspect]
     Indication: NUCLEAR MAGNETIC RESONANCE IMAGING
     Dosage: 30 ML, SINGLE
     Dates: start: 20060525, end: 20060525
  2. OPTIMARK [Suspect]
     Indication: ANGIOGRAM
  3. OMNISCAN [Suspect]
     Indication: NUCLEAR MAGNETIC RESONANCE IMAGING
     Dosage: 20 ML, SINGLE
     Dates: start: 20060112, end: 20060112
  4. OMNISCAN [Suspect]
     Indication: MAGNETIC RESONANCE CHOLANGIOPANCREATOGRAPHY
  5. MAGNEVIST [Suspect]
     Indication: NUCLEAR MAGNETIC RESONANCE IMAGING
     Dosage: 20 ML, SINGLE
     Dates: start: 20060206, end: 20060206
  6. MULTIHANCE [Suspect]
     Indication: NUCLEAR MAGNETIC RESONANCE IMAGING
     Dosage: 12 ML, SINGLE
     Dates: start: 20071030, end: 20071030
  7. MULTIHANCE [Suspect]
     Indication: ANGIOGRAM

REACTIONS (11)
  - CATHETER SITE INFECTION [None]
  - COLITIS [None]
  - HAIR DISORDER [None]
  - HYPERTONIA [None]
  - NEPHROGENIC SYSTEMIC FIBROSIS [None]
  - OFF LABEL USE [None]
  - PARAESTHESIA [None]
  - POST PROCEDURAL HAEMATOMA [None]
  - POSTOPERATIVE FEVER [None]
  - SEROMA [None]
  - URINARY TRACT INFECTION [None]
